FAERS Safety Report 4818015-8 (Version None)
Quarter: 2005Q4

REPORT INFORMATION
  Report Type: 
  Country: None (occurrence: None)
  Receive Date: 20051102
  Receipt Date: 20051028
  Transmission Date: 20060501
  Serious: Yes (Life-Threatening, Hospitalization)
  Sender: FDA-Public Use
  Company Number: 2005SE06199

PATIENT
  Age: 83 Year
  Sex: Female

DRUGS (7)
  1. BLOPRESS TABLETS 4 [Suspect]
     Indication: HYPERTENSION
     Route: 048
     Dates: start: 20051006, end: 20051021
  2. CALSLOT [Suspect]
     Indication: HYPERTENSION
     Route: 048
     Dates: start: 20050401
  3. NAPROXEN [Concomitant]
     Route: 048
     Dates: start: 20050401
  4. TERRANAS [Concomitant]
     Route: 048
     Dates: start: 20050401
  5. DIHYDROERGOTAMINE MESYLATE [Concomitant]
     Route: 048
     Dates: start: 20050401
  6. MIGRISTENE [Concomitant]
     Route: 048
     Dates: start: 20050401
  7. TRYPTANOL [Concomitant]
     Route: 048
     Dates: start: 20050401

REACTIONS (1)
  - SHOCK [None]
